FAERS Safety Report 20687399 (Version 15)
Quarter: 2022Q3

REPORT INFORMATION
  Report Type: Report from Study
  Country: AU (occurrence: AU)
  Receive Date: 20220408
  Receipt Date: 20220929
  Transmission Date: 20221027
  Serious: Yes (Hospitalization, Other)
  Sender: FDA-Public Use
  Company Number: AU-AMGEN-AUSCT2022023263

PATIENT
  Age: 9 Year
  Sex: Male

DRUGS (22)
  1. CARFILZOMIB [Suspect]
     Active Substance: CARFILZOMIB
     Indication: Acute lymphocytic leukaemia
     Dosage: 62 MILLIGRAM
     Route: 042
     Dates: start: 20211213
  2. CARFILZOMIB [Suspect]
     Active Substance: CARFILZOMIB
     Dosage: UNK
     Route: 042
     Dates: start: 20220203, end: 20220209
  3. METHOTREXATE [Concomitant]
     Active Substance: METHOTREXATE
     Indication: Acute lymphocytic leukaemia
     Dosage: 15 MILLIGRAM
     Dates: start: 20220104, end: 20220208
  4. VINCRISTINE [Concomitant]
     Active Substance: VINCRISTINE
     Indication: Acute lymphocytic leukaemia
     Dosage: 1.6 MILLIGRAM
     Dates: start: 20170608
  5. CYTARABINE [Concomitant]
     Active Substance: CYTARABINE
     Indication: Acute lymphocytic leukaemia
     Dosage: 30-82 MILLIGRAMS
     Dates: start: 20170607
  6. HYDROCORTISONE [Concomitant]
     Active Substance: HYDROCORTISONE
     Indication: Acute lymphocytic leukaemia
     Dosage: 15 MILLIGRAM
     Dates: start: 20200101
  7. SULFAMETHOXAZOLE\TRIMETHOPRIM [Concomitant]
     Active Substance: SULFAMETHOXAZOLE\TRIMETHOPRIM
     Dosage: 1 UNK
     Route: 048
     Dates: start: 20211218, end: 20220524
  8. ONDANSETRON [Concomitant]
     Active Substance: ONDANSETRON
     Dosage: 4 MILLIGRAM
     Route: 048
     Dates: start: 20211208
  9. OXYCODONE HYDROCHLORIDE [Concomitant]
     Active Substance: OXYCODONE HYDROCHLORIDE
     Dosage: 5 MILLIGRAM
     Dates: start: 20211212
  10. ZINC OXIDE [Concomitant]
     Active Substance: ZINC OXIDE
     Dosage: 75 GRAM
     Route: 061
     Dates: start: 20211215
  11. SULFAMETHOXAZOLE\TRIMETHOPRIM [Concomitant]
     Active Substance: SULFAMETHOXAZOLE\TRIMETHOPRIM
     Dosage: 1 UNK
     Route: 048
     Dates: start: 20211219
  12. METOCLOPRAMIDE [Concomitant]
     Active Substance: METOCLOPRAMIDE
     Dosage: 5 MILLIGRAM
     Route: 048
     Dates: start: 20211215
  13. DOCUSATE [Concomitant]
     Active Substance: DOCUSATE
     Dosage: 50 MILLIGRAM
     Route: 048
     Dates: start: 20211215
  14. CYCLIZINE [Concomitant]
     Active Substance: CYCLIZINE
     Dosage: 25 MILLIGRAM
     Route: 048
     Dates: start: 20211215
  15. Curasept [Concomitant]
     Dosage: 0.5 UNK
     Route: 061
     Dates: start: 20211215
  16. MERCAPTOPURINE [Concomitant]
     Active Substance: MERCAPTOPURINE
     Dosage: 50-75 MILLIGRAM
     Dates: start: 20220131, end: 20220206
  17. DEXTROSE [Concomitant]
     Active Substance: DEXTROSE
     Dosage: 136.25 UNK
     Route: 042
     Dates: start: 20210126, end: 20220209
  18. SODIUM CHLORIDE [Concomitant]
     Active Substance: SODIUM CHLORIDE
     Dosage: 136.25 UNK
     Route: 042
     Dates: start: 20220126, end: 20220209
  19. POTASSIUM CHLORIDE [Concomitant]
     Active Substance: POTASSIUM CHLORIDE
     Dosage: 136.25 UNK
     Route: 042
     Dates: start: 20220126, end: 20220209
  20. CYCLOPHOSPHAMIDE [Concomitant]
     Active Substance: CYCLOPHOSPHAMIDE
     Indication: Leukaemia
     Dosage: 1090 MILLIGRAM
     Dates: start: 20220125, end: 20220125
  21. DEXAMETHASONE [Concomitant]
     Active Substance: DEXAMETHASONE
     Dosage: UNK
  22. PIPERACILLIN AND TAZOBACTAM [Concomitant]
     Active Substance: PIPERACILLIN SODIUM\TAZOBACTAM SODIUM
     Dosage: 3210 MILLIGRAM
     Route: 042
     Dates: start: 20220107, end: 20220116

REACTIONS (2)
  - Febrile neutropenia [Recovered/Resolved]
  - Pleural effusion [Recovered/Resolved]

NARRATIVE: CASE EVENT DATE: 20220202
